FAERS Safety Report 7096791-4 (Version None)
Quarter: 2010Q4

REPORT INFORMATION
  Report Type: 
  Country: None (occurrence: None)
  Receive Date: 20101111
  Receipt Date: 20101103
  Transmission Date: 20110411
  Serious: Yes (Hospitalization, Other)
  Sender: FDA-Public Use
  Company Number: BR-MEDIMMUNE-MEDI-0011608

PATIENT
  Sex: Female
  Weight: 8.5 kg

DRUGS (3)
  1. SYNAGIS [Suspect]
     Dates: start: 20100420
  2. ONDANSETRON [Concomitant]
     Indication: NAUSEA
  3. FILGRASTIM [Concomitant]

REACTIONS (2)
  - CONVULSION [None]
  - PINEAL PARENCHYMAL NEOPLASM MALIGNANT [None]
